FAERS Safety Report 7558149-0 (Version None)
Quarter: 2011Q2

REPORT INFORMATION
  Report Type: 
  Country: None (occurrence: None)
  Receive Date: 20110620
  Receipt Date: 20110608
  Transmission Date: 20111010
  Serious: Yes (Hospitalization)
  Sender: FDA-Public Use
  Company Number: FR-SANOFI-AVENTIS-2011SA037006

PATIENT
  Age: 66 Year
  Sex: Male

DRUGS (6)
  1. ATORVASTATIN CALCIUM [Concomitant]
     Route: 048
  2. HUMALOG [Suspect]
     Route: 058
  3. LANTUS [Suspect]
     Route: 058
     Dates: start: 20060701, end: 20110501
  4. PERINDOPRIL ERBUMINE [Concomitant]
     Route: 048
  5. INDOCOLLYRE [Concomitant]
     Route: 047
  6. AMLODIPINE [Concomitant]
     Indication: HYPERTENSION
     Route: 048

REACTIONS (1)
  - BASAL CELL CARCINOMA [None]
